FAERS Safety Report 23508011 (Version 1)
Quarter: 2024Q1

REPORT INFORMATION
  Report Type: Spontaneous
  Country: IT (occurrence: IT)
  Receive Date: 20240209
  Receipt Date: 20240209
  Transmission Date: 20240410
  Serious: Yes (Hospitalization, Other)
  Sender: FDA-Public Use
  Company Number: None

PATIENT
  Age: 12 Year
  Sex: Female
  Weight: 25 kg

DRUGS (3)
  1. ULTOMIRIS [Suspect]
     Active Substance: RAVULIZUMAB-CWVZ
     Indication: Haemolytic uraemic syndrome
     Dosage: 900 MILLIGRAM, EVERY 4 WEEKS FOR THE TWO INFUSIONS
     Route: 042
     Dates: start: 20230531
  2. ULTOMIRIS [Suspect]
     Active Substance: RAVULIZUMAB-CWVZ
     Dosage: 2100 MILLIGRAM, EVERY 8 WEEKS
     Route: 042
     Dates: end: 20231204
  3. URSODIOL [Concomitant]
     Active Substance: URSODIOL
     Indication: Cholelithiasis
     Dosage: UNK
     Route: 065
     Dates: start: 201307

REACTIONS (4)
  - Oedema peripheral [Recovered/Resolved with Sequelae]
  - Hypervolaemia [Recovered/Resolved with Sequelae]
  - Renal impairment [Recovered/Resolved with Sequelae]
  - Polyserositis [Recovered/Resolved with Sequelae]

NARRATIVE: CASE EVENT DATE: 20231121
